FAERS Safety Report 13820525 (Version 1)
Quarter: 2017Q3

REPORT INFORMATION
  Report Type: Report from Study
  Country: CN (occurrence: CN)
  Receive Date: 20170801
  Receipt Date: 20170801
  Transmission Date: 20171127
  Serious: Yes (Other)
  Sender: FDA-Public Use
  Company Number: CN-ROCHE-1957604

PATIENT
  Sex: Male
  Weight: 53 kg

DRUGS (1)
  1. AVASTIN [Suspect]
     Active Substance: BEVACIZUMAB
     Indication: NON-SMALL CELL LUNG CANCER
     Route: 041
     Dates: start: 20170223

REACTIONS (7)
  - Asthenia [Unknown]
  - Vascular occlusion [Recovering/Resolving]
  - Anaemia [Unknown]
  - Pyrexia [Unknown]
  - Cardiac disorder [Unknown]
  - Nasopharyngitis [Unknown]
  - Haemoglobin decreased [Recovering/Resolving]
